FAERS Safety Report 10400460 (Version 1)
Quarter: 2014Q3

REPORT INFORMATION
  Report Type: Spontaneous
  Country: US (occurrence: US)
  Receive Date: 20140821
  Receipt Date: 20140821
  Transmission Date: 20150326
  Serious: No
  Sender: FDA-Public Use
  Company Number: US-ASTRAZENECA-2013SE89187

PATIENT
  Age: 78 Year
  Sex: Female
  Weight: 104.3 kg

DRUGS (20)
  1. PRAVASTATIN [Concomitant]
     Active Substance: PRAVASTATIN\PRAVASTATIN SODIUM
     Indication: BLOOD CHOLESTEROL ABNORMAL
     Route: 048
  2. BOURSAT CALCIUM [Concomitant]
     Indication: GASTRIC DISORDER
     Route: 048
  3. FISH OIL [Concomitant]
     Active Substance: FISH OIL
     Indication: SUPPLEMENTATION THERAPY
     Dosage: DAILY
     Route: 048
  4. LEVOFEROXIN [Concomitant]
     Indication: ANTIBIOTIC THERAPY
     Route: 048
  5. LEVOBUTEROL [Concomitant]
     Indication: INHALATION THERAPY
     Route: 055
  6. SYMBICORT [Suspect]
     Active Substance: BUDESONIDE\FORMOTEROL FUMARATE DIHYDRATE
     Indication: CHRONIC OBSTRUCTIVE PULMONARY DISEASE
     Dosage: 160/4.5 MCG, ONE PUFFS BID
     Route: 055
     Dates: start: 201311
  7. XOPENEX [Concomitant]
     Active Substance: LEVALBUTEROL HYDROCHLORIDE
     Indication: INHALATION THERAPY
     Dosage: PRN
     Route: 055
  8. SOTALOL. [Concomitant]
     Active Substance: SOTALOL
     Indication: CARDIAC DISORDER
     Route: 048
  9. STOOL SOFTENER [Concomitant]
     Active Substance: DOCUSATE CALCIUM
     Route: 048
  10. PANTOPRAZOLE [Concomitant]
     Active Substance: PANTOPRAZOLE SODIUM
     Indication: ANTACID THERAPY
     Route: 048
  11. WARFARIN [Concomitant]
     Active Substance: WARFARIN
     Route: 048
  12. PERINDOPRIL SR [Concomitant]
     Indication: BLOOD PRESSURE ABNORMAL
     Route: 048
  13. SYMBICORT [Suspect]
     Active Substance: BUDESONIDE\FORMOTEROL FUMARATE DIHYDRATE
     Indication: LUNG INFECTION
     Dosage: 160/4.5 MCG, TWO PUFFS BID
     Route: 055
     Dates: start: 20131115
  14. BABY ASPIRIN [Concomitant]
     Active Substance: ASPIRIN
     Route: 048
  15. PROBIOTIC [Concomitant]
     Active Substance: PROBIOTICS NOS
     Indication: GASTRIC DISORDER
     Route: 048
  16. FINASTERIDE. [Concomitant]
     Active Substance: FINASTERIDE
     Indication: PROSTATE CANCER
     Route: 048
  17. SYMBICORT [Suspect]
     Active Substance: BUDESONIDE\FORMOTEROL FUMARATE DIHYDRATE
     Indication: CHRONIC OBSTRUCTIVE PULMONARY DISEASE
     Dosage: 160/4.5 MCG, TWO PUFFS BID
     Route: 055
     Dates: start: 20131115
  18. SYMBICORT [Suspect]
     Active Substance: BUDESONIDE\FORMOTEROL FUMARATE DIHYDRATE
     Indication: LUNG INFECTION
     Dosage: 160/4.5 MCG, ONE PUFFS BID
     Route: 055
     Dates: start: 201311
  19. METAMUCIL [Concomitant]
     Active Substance: PLANTAGO SEED
     Dosage: DAILY
     Route: 048
  20. VITAMIN D3 [Concomitant]
     Active Substance: CHOLECALCIFEROL
     Indication: SUPPLEMENTATION THERAPY
     Route: 048

REACTIONS (12)
  - Back pain [Unknown]
  - Muscle spasms [Unknown]
  - Lung infection [Unknown]
  - Arthralgia [Unknown]
  - Myalgia [Unknown]
  - Neck pain [Unknown]
  - Off label use [Unknown]
  - Drug ineffective [Unknown]
  - Oropharyngeal pain [Unknown]
  - Muscle spasms [Unknown]
  - Muscle spasms [Not Recovered/Not Resolved]
  - Headache [Unknown]

NARRATIVE: CASE EVENT DATE: 2013
